FAERS Safety Report 8807509 (Version 5)
Quarter: 2013Q2

REPORT INFORMATION
  Report Type: Spontaneous
  Country: US (occurrence: US)
  Receive Date: 20120925
  Receipt Date: 20130528
  Transmission Date: 20140414
  Serious: Yes (Other)
  Sender: FDA-Public Use
  Company Number: US-PFIZER INC-2012234718

PATIENT
  Sex: Female

DRUGS (2)
  1. TIKOSYN [Suspect]
     Dosage: UNK
     Dates: start: 20120111, end: 20130114
  2. LIPITOR [Suspect]
     Dosage: UNK
     Dates: start: 20120111, end: 20130114

REACTIONS (4)
  - Gastric haemorrhage [Unknown]
  - Tooth disorder [Unknown]
  - Malaise [Unknown]
  - Oropharyngeal pain [Unknown]
